FAERS Safety Report 6534052-X (Version None)
Quarter: 2010Q1

REPORT INFORMATION
  Report Type: 
  Country: None (occurrence: None)
  Receive Date: 20100112
  Receipt Date: 20100104
  Transmission Date: 20100710
  Serious: Yes (Death)
  Sender: FDA-Public Use
  Company Number: PL-BAYER-201010087GPV

PATIENT
  Age: 56 Year
  Sex: Male
  Weight: 92 kg

DRUGS (11)
  1. FLUDARABINE [Suspect]
     Indication: BONE MARROW CONDITIONING REGIMEN
     Route: 042
     Dates: start: 20091216, end: 20091220
  2. TREOSULFAN [Suspect]
     Indication: BONE MARROW CONDITIONING REGIMEN
     Route: 042
     Dates: start: 20091216, end: 20091218
  3. AMOXICILLIN AND CLAVULANATE POTASSIUM [Concomitant]
     Indication: INFECTION PROPHYLAXIS
     Route: 042
     Dates: start: 20091214, end: 20091226
  4. ACICLOVIR [Concomitant]
     Indication: INFECTION PROPHYLAXIS
     Route: 042
     Dates: start: 20091214, end: 20091228
  5. FLUCONAZOLE [Concomitant]
     Indication: INFECTION PROPHYLAXIS
     Route: 048
     Dates: start: 20091214, end: 20091224
  6. FUROSEMIDE [Concomitant]
     Indication: DIURETIC THERAPY
     Dosage: INTAKE OVER MANY MONTH PRIOR TO HSCT
     Route: 048
  7. ALDACTONE [Concomitant]
     Indication: DIURETIC THERAPY
     Dosage: INTAKE OVER MANY MONTH PRIOR TO HSCT
     Route: 048
  8. ONDANSETRON [Concomitant]
     Indication: PROPHYLAXIS OF NAUSEA AND VOMITING
     Route: 042
     Dates: start: 20091216, end: 20091221
  9. CYCLOSPORINE [Concomitant]
     Indication: PROPHYLAXIS AGAINST GRAFT VERSUS HOST DISEASE
     Dosage: DOSE ADJUSTED TO CREATININE LEVELS
     Route: 042
     Dates: start: 20091221, end: 20091226
  10. NANDROPARINUM [Concomitant]
     Indication: CARDIOVASCULAR EVENT PROPHYLAXIS
     Route: 042
     Dates: start: 20091221, end: 20091228
  11. URSODEOXYCHOLIC ACID [Concomitant]
     Indication: PROPHYLAXIS
     Route: 048
     Dates: start: 20091219, end: 20091225

REACTIONS (6)
  - ABDOMINAL PAIN [None]
  - ANURIA [None]
  - BLOOD AMYLASE INCREASED [None]
  - BLOOD BILIRUBIN INCREASED [None]
  - BLOOD CREATININE INCREASED [None]
  - MULTI-ORGAN FAILURE [None]
